FAERS Safety Report 9670060 (Version 2)
Quarter: 2013Q4

REPORT INFORMATION
  Report Type: Spontaneous
  Country: CN (occurrence: CN)
  Receive Date: 20131105
  Receipt Date: 20131105
  Transmission Date: 20140711
  Serious: Yes (Death)
  Sender: FDA-Public Use
  Company Number: CN-OTSUKA-011502

PATIENT
  Sex: 0

DRUGS (6)
  1. BUSULFEX [Suspect]
     Indication: STEM CELL TRANSPLANT
     Dosage: UNK
     Route: 065
  2. ARA-C [Concomitant]
     Indication: STEM CELL TRANSPLANT
     Dosage: 4 DF DOSAGE FORM, DAILY DOSE
     Route: 042
  3. CYCLOPHOSPHAMIDE [Concomitant]
     Indication: STEM CELL TRANSPLANT
     Dosage: 1.8 DF DOSAGE FORM, DAILY DOSE
     Route: 042
  4. ATG [Concomitant]
     Indication: STEM CELL TRANSPLANT
     Dosage: 2.5 MG/KG, DAILY DOSE
     Route: 042
  5. CYCLOSPORIN A [Concomitant]
     Indication: PROPHYLAXIS AGAINST GRAFT VERSUS HOST DISEASE
     Dosage: 2.5 MG/KG, DAILY DOSE
     Route: 042
  6. MYCOPHENOLATE MOFETIL [Concomitant]
     Indication: PROPHYLAXIS AGAINST GRAFT VERSUS HOST DISEASE
     Dosage: 0.5 G, Q12HR
     Route: 048

REACTIONS (1)
  - Infection [Fatal]
